FAERS Safety Report 14605797 (Version 1)
Quarter: 2018Q1

REPORT INFORMATION
  Report Type: Report from Study
  Country: US (occurrence: US)
  Receive Date: 20180306
  Receipt Date: 20180306
  Transmission Date: 20180509
  Serious: Yes (Death, Hospitalization, Other)
  Sender: FDA-Public Use
  Company Number: US-BEH-2017084103

PATIENT
  Sex: Male
  Weight: 3.5 kg

DRUGS (1)
  1. RIASTAP [Suspect]
     Active Substance: FIBRINOGEN HUMAN
     Indication: BLOOD DISORDER
     Dosage: 245 MG, SINGLE
     Route: 065
     Dates: start: 20170727

REACTIONS (7)
  - Dyspnoea [Unknown]
  - Circulatory collapse [Recovered/Resolved]
  - Hospitalisation [Unknown]
  - Cardiac arrest [Recovered/Resolved]
  - Seizure [Fatal]
  - Cardio-respiratory arrest [Fatal]
  - Peripheral artery occlusion [Recovered/Resolved with Sequelae]

NARRATIVE: CASE EVENT DATE: 20170728
